FAERS Safety Report 10089835 (Version 2)
Quarter: 2014Q2

REPORT INFORMATION
  Report Type: Spontaneous
  Country: TH (occurrence: TH)
  Receive Date: 20140421
  Receipt Date: 20140421
  Transmission Date: 20141212
  Serious: Yes (Other)
  Sender: FDA-Public Use
  Company Number: TH-MERCK-1402THA009798

PATIENT
  Sex: 0

DRUGS (3)
  1. RIBAVIRIN [Suspect]
     Indication: CHRONIC HEPATITIS C
     Dosage: FOR 4 WEEKS
     Route: 065
  2. PEGINTERFERON ALFA-2B [Suspect]
     Indication: CHRONIC HEPATITIS C
     Dosage: FOR 4 WEEKS
     Route: 065
  3. BOCEPREVIR [Suspect]
     Indication: CHRONIC HEPATITIS C
     Dosage: FOR 4 WEEKS
     Route: 065

REACTIONS (8)
  - Neutropenia [Unknown]
  - Anaemia [Unknown]
  - Rash [Unknown]
  - Thrombocytopenia [Unknown]
  - Treatment failure [Unknown]
  - Weight decreased [Unknown]
  - Dysgeusia [Unknown]
  - Nausea [Unknown]
